FAERS Safety Report 21143721 (Version 3)
Quarter: 2025Q2

REPORT INFORMATION
  Report Type: Report from Study
  Country: CA (occurrence: CA)
  Receive Date: 20220728
  Receipt Date: 20250411
  Transmission Date: 20250717
  Serious: Yes (Other)
  Sender: TAKEDA
  Company Number: CA-TAKEDA-2022TUS046373

PATIENT
  Age: 63 Year
  Sex: Female

DRUGS (7)
  1. VEDOLIZUMAB [Suspect]
     Active Substance: VEDOLIZUMAB
     Indication: Colitis ulcerative
  2. VEDOLIZUMAB [Suspect]
     Active Substance: VEDOLIZUMAB
     Dosage: 300 MILLIGRAM, Q4WEEKS
     Dates: start: 20220513
  3. VEDOLIZUMAB [Suspect]
     Active Substance: VEDOLIZUMAB
     Dosage: 300 MILLIGRAM, Q4WEEKS
  4. VEDOLIZUMAB [Suspect]
     Active Substance: VEDOLIZUMAB
     Dosage: 300 MILLIGRAM, Q4WEEKS
  5. VEDOLIZUMAB [Suspect]
     Active Substance: VEDOLIZUMAB
     Dosage: 300 MILLIGRAM, Q4WEEKS
     Dates: end: 20250313
  6. Salofalk [Concomitant]
  7. MESALAMINE [Concomitant]
     Active Substance: MESALAMINE

REACTIONS (8)
  - Haematochezia [Recovered/Resolved]
  - Colitis ulcerative [Unknown]
  - Diarrhoea [Recovered/Resolved]
  - Defaecation urgency [Recovered/Resolved]
  - Mucous stools [Recovered/Resolved]
  - Off label use [Unknown]
  - Flatulence [Recovered/Resolved]
  - Sinusitis [Unknown]

NARRATIVE: CASE EVENT DATE: 20220513
